FAERS Safety Report 21345906 (Version 1)
Quarter: 2022Q3

REPORT INFORMATION
  Report Type: Report from Study
  Country: BR (occurrence: BR)
  Receive Date: 20220916
  Receipt Date: 20220916
  Transmission Date: 20221027
  Serious: Yes (Hospitalization)
  Sender: FDA-Public Use
  Company Number: BR-BIOGEN-2022BI01154042

PATIENT
  Sex: Male
  Weight: 11.3 kg

DRUGS (4)
  1. SPINRAZA [Suspect]
     Active Substance: NUSINERSEN
     Indication: Spinal muscular atrophy
     Dosage: 12MG/5 ML
     Route: 050
     Dates: start: 20201015
  2. ZIRVIT KIDS [Concomitant]
     Indication: Vitamin supplementation
     Route: 050
     Dates: start: 2021
  3. ALLEGRA [Concomitant]
     Active Substance: FEXOFENADINE HYDROCHLORIDE
     Indication: Hypersensitivity
     Route: 050
     Dates: start: 20220906
  4. MONTELUKAST SODIUM [Concomitant]
     Active Substance: MONTELUKAST SODIUM
     Indication: Hypersensitivity
     Route: 050
     Dates: start: 202205

REACTIONS (14)
  - Lacrimation increased [Recovered/Resolved]
  - Secretion discharge [Recovered/Resolved]
  - Heart rate increased [Recovered/Resolved]
  - Infection [Recovered/Resolved]
  - Enteritis infectious [Recovered/Resolved]
  - Procedural site reaction [Recovered/Resolved]
  - Rhinorrhoea [Recovered/Resolved]
  - Oxygen saturation decreased [Recovered/Resolved]
  - Investigation abnormal [Recovered/Resolved]
  - Post procedural fever [Recovered/Resolved]
  - COVID-19 [Recovered/Resolved]
  - Flatulence [Not Recovered/Not Resolved]
  - Respiratory tract infection [Recovered/Resolved]
  - Pyrexia [Recovered/Resolved]

NARRATIVE: CASE EVENT DATE: 20210101
